FAERS Safety Report 5639766-1 (Version None)
Quarter: 2008Q1

REPORT INFORMATION
  Report Type: 
  Country: None (occurrence: None)
  Receive Date: 20080225
  Receipt Date: 20080212
  Transmission Date: 20080703
  Serious: Yes (Hospitalization)
  Sender: FDA-Public Use
  Company Number: B0509139A

PATIENT
  Age: 34 Year
  Sex: Female

DRUGS (3)
  1. AUGMENTIN [Suspect]
     Indication: VULVOVAGINITIS
     Dosage: ORAL
     Route: 048
     Dates: start: 20070701
  2. ACETAMINOPHEN [Concomitant]
  3. LEVOTHYROXINE SODIUM [Concomitant]

REACTIONS (2)
  - DRUG EXPOSURE DURING PREGNANCY [None]
  - TOXIC SKIN ERUPTION [None]
